FAERS Safety Report 5459316-2 (Version None)
Quarter: 2007Q3

REPORT INFORMATION
  Report Type: 
  Country: None (occurrence: None)
  Receive Date: 20070919
  Receipt Date: 20070913
  Transmission Date: 20080115
  Serious: Yes (Hospitalization)
  Sender: FDA-Public Use
  Company Number: FR-ASTRAZENECA-2007CG01099

PATIENT
  Age: 938 Month
  Sex: Female
  Weight: 52 kg

DRUGS (2)
  1. ARIMIDEX [Suspect]
     Indication: BREAST CANCER FEMALE
     Route: 048
     Dates: start: 20031001
  2. BETA BLOCKING AGENT [Concomitant]
     Indication: EXTRASYSTOLES

REACTIONS (1)
  - PORTAL VEIN THROMBOSIS [None]
